FAERS Safety Report 17867782 (Version 4)
Quarter: 2021Q3

REPORT INFORMATION
  Report Type: Spontaneous
  Country: MX (occurrence: MX)
  Receive Date: 20200605
  Receipt Date: 20210901
  Transmission Date: 20211014
  Serious: Yes (Other)
  Sender: FDA-Public Use
  Company Number: MX-AMGEN-MEXSP2020087365

PATIENT

DRUGS (1)
  1. PROLIA [Suspect]
     Active Substance: DENOSUMAB
     Indication: OSTEOPOROSIS POSTMENOPAUSAL
     Dosage: UNK
     Route: 065

REACTIONS (8)
  - Multiple fractures [Unknown]
  - Osteonecrosis of jaw [Unknown]
  - Treatment noncompliance [Unknown]
  - Fracture [Unknown]
  - Eczema [Unknown]
  - Atypical femur fracture [Unknown]
  - Spinal fracture [Unknown]
  - Adverse event [Unknown]
